FAERS Safety Report 4279707-5 (Version None)
Quarter: 2004Q1

REPORT INFORMATION
  Report Type: 
  Country: None (occurrence: None)
  Receive Date: 20040123
  Receipt Date: 20040120
  Transmission Date: 20041129
  Serious: Yes (Hospitalization)
  Sender: FDA-Public Use
  Company Number: NLWYE399612NOV03

PATIENT
  Age: 79 Year
  Sex: Female

DRUGS (3)
  1. EFFEXOR XR [Suspect]
     Dosage: SEE IMAGE
     Route: 048
  2. XANAX [Concomitant]
  3. ZYPREXA [Concomitant]

REACTIONS (2)
  - CONVERSION DISORDER [None]
  - EPILEPSY [None]
